FAERS Safety Report 6260838-5 (Version None)
Quarter: 2009Q3

REPORT INFORMATION
  Report Type: 
  Country: None (occurrence: None)
  Receive Date: 20090707
  Receipt Date: 20090622
  Transmission Date: 20100115
  Serious: Yes (Hospitalization)
  Sender: FDA-Public Use
  Company Number: 2009001875

PATIENT
  Age: 52 Year
  Sex: Female

DRUGS (2)
  1. TARCEVA [Suspect]
     Indication: NON-SMALL CELL LUNG CANCER
     Dosage: (150 MG, QD), ORAL
     Route: 048
     Dates: start: 20090328, end: 20090528
  2. IBUPROFEN [Suspect]
     Dosage: ORAL
     Route: 048

REACTIONS (8)
  - ABDOMINAL DISCOMFORT [None]
  - ACNE [None]
  - AGEUSIA [None]
  - EYE PAIN [None]
  - GASTROINTESTINAL HAEMORRHAGE [None]
  - GLOSSODYNIA [None]
  - NAUSEA [None]
  - VISION BLURRED [None]
